FAERS Safety Report 6103412-3 (Version None)
Quarter: 2009Q1

REPORT INFORMATION
  Report Type: 
  Country: None (occurrence: None)
  Receive Date: 20090305
  Receipt Date: 20090219
  Transmission Date: 20090719
  Serious: Yes (Hospitalization, Other)
  Sender: FDA-Public Use
  Company Number: PHHY2009DE06820

PATIENT

DRUGS (4)
  1. DIOVAN HCT [Suspect]
     Indication: HYPERTENSION
     Dosage: 1 DF, QD
     Route: 048
     Dates: start: 20060101
  2. SANDIMMUNE [Suspect]
     Indication: GLOMERULONEPHRITIS
     Dosage: UNK
     Route: 048
     Dates: start: 20070101
  3. MYFORTIC [Concomitant]
     Dosage: 720 MG/DAY
     Route: 048
  4. TORSEMIDE [Concomitant]
     Indication: OEDEMA
     Dosage: UNK
     Route: 048
     Dates: start: 20060101

REACTIONS (17)
  - ARTHRALGIA [None]
  - BLOOD CHOLESTEROL INCREASED [None]
  - BLOOD PRESSURE INCREASED [None]
  - BLOOD TRIGLYCERIDES INCREASED [None]
  - C-REACTIVE PROTEIN INCREASED [None]
  - DIARRHOEA [None]
  - DNA ANTIBODY POSITIVE [None]
  - FABRY'S DISEASE [None]
  - GASTROENTERITIS [None]
  - HYPERLIPIDAEMIA [None]
  - NAUSEA [None]
  - OEDEMA PERIPHERAL [None]
  - OSTEONECROSIS [None]
  - PRURITUS [None]
  - PYREXIA [None]
  - RASH [None]
  - VOMITING [None]
